FAERS Safety Report 18144936 (Version 1)
Quarter: 2020Q3

REPORT INFORMATION
  Report Type: Spontaneous
  Country: US (occurrence: US)
  Receive Date: 20200813
  Receipt Date: 20200813
  Transmission Date: 20201103
  Serious: Yes (Hospitalization, Other)
  Sender: FDA-Public Use
  Company Number: None

PATIENT
  Age: 88 Year
  Sex: Female
  Weight: 51.75 kg

DRUGS (6)
  1. SYNTHROID [Concomitant]
     Active Substance: LEVOTHYROXINE SODIUM
  2. XANAX [Concomitant]
     Active Substance: ALPRAZOLAM
  3. NITROFURANTOIN MONOHYDRATE MACROCRYSTALS [Suspect]
     Active Substance: NITROFURANTOIN\NITROFURANTOIN MONOHYDRATE
     Indication: URINARY TRACT INFECTION
  4. PEPCID [Concomitant]
     Active Substance: FAMOTIDINE
  5. BYSTOLIC [Concomitant]
     Active Substance: NEBIVOLOL HYDROCHLORIDE
  6. POTASSIUM [Concomitant]
     Active Substance: POTASSIUM

REACTIONS (5)
  - Chills [None]
  - Skin exfoliation [None]
  - Dyspnoea [None]
  - Vomiting [None]
  - Tremor [None]

NARRATIVE: CASE EVENT DATE: 20200705
